FAERS Safety Report 5659065-1 (Version None)
Quarter: 2008Q1

REPORT INFORMATION
  Report Type: 
  Country: None (occurrence: None)
  Receive Date: 20080310
  Receipt Date: 20071227
  Transmission Date: 20080703
  Serious: No
  Sender: FDA-Public Use
  Company Number: US-BAYER-200810030BCC

PATIENT
  Age: 55 Year
  Sex: Female
  Weight: 127 kg

DRUGS (4)
  1. ALEVE [Suspect]
     Indication: PROCEDURAL PAIN
     Dosage: TOTAL DAILY DOSE: 880 MG  UNIT DOSE: 220 MG
     Route: 048
     Dates: start: 20071201
  2. ASPIRIN [Suspect]
     Indication: DRUG USE FOR UNKNOWN INDICATION
     Route: 048
  3. CYMBALTA [Concomitant]
  4. PREVACID [Concomitant]

REACTIONS (2)
  - ERYTHEMA [None]
  - RASH PUSTULAR [None]
